FAERS Safety Report 5705060-3 (Version None)
Quarter: 2008Q2

REPORT INFORMATION
  Report Type: 
  Country: None (occurrence: None)
  Receive Date: 20080409
  Receipt Date: 20080401
  Transmission Date: 20081010
  Serious: Yes (Other)
  Sender: FDA-Public Use
  Company Number: 163-C5013-08040089

PATIENT
  Age: 60 Year
  Sex: Male

DRUGS (2)
  1. CC-5013 (LENALIDOMIDE) (CAPSULE) [Suspect]
     Indication: MULTIPLE MYELOMA
     Dosage: 30 MG, ORAL
     Route: 048
     Dates: start: 20031103
  2. REVLIMID [Suspect]
     Indication: MULTIPLE MYELOMA
     Dosage: 30 MG, ORAL
     Route: 048
     Dates: start: 20061208, end: 20080101

REACTIONS (3)
  - MYELODYSPLASTIC SYNDROME [None]
  - SHIFT TO THE LEFT [None]
  - TRISOMY 8 [None]
